FAERS Safety Report 5272399-8 (Version None)
Quarter: 2007Q1

REPORT INFORMATION
  Report Type: 
  Country: None (occurrence: None)
  Receive Date: 20070320
  Receipt Date: 20070320
  Transmission Date: 20070707
  Serious: Yes (Other)
  Sender: FDA-Public Use
  Company Number: None

PATIENT
  Age: 48 Year
  Sex: Female
  Weight: 77.1115 kg

DRUGS (8)
  1. AMBIEN CR [Suspect]
     Indication: ANXIETY
     Dosage: 12.5 MG 1 @ BEDTIME PO
     Route: 048
     Dates: start: 20061201, end: 20070201
  2. AMBIEN CR [Suspect]
     Indication: DEPRESSION
     Dosage: 12.5 MG 1 @ BEDTIME PO
     Route: 048
     Dates: start: 20061201, end: 20070201
  3. AMBIEN CR [Suspect]
     Indication: INSOMNIA
     Dosage: 12.5 MG 1 @ BEDTIME PO
     Route: 048
     Dates: start: 20061201, end: 20070201
  4. AMBIEN CR [Suspect]
     Indication: STRESS
     Dosage: 12.5 MG 1 @ BEDTIME PO
     Route: 048
     Dates: start: 20061201, end: 20070201
  5. AMBIEN [Suspect]
     Indication: ANXIETY
     Dosage: 10.0 MG 1 @ BEDTIME PO
     Route: 048
     Dates: start: 20050601, end: 20061201
  6. AMBIEN [Suspect]
     Indication: DEPRESSION
     Dosage: 10.0 MG 1 @ BEDTIME PO
     Route: 048
     Dates: start: 20050601, end: 20061201
  7. AMBIEN [Suspect]
     Indication: INSOMNIA
     Dosage: 10.0 MG 1 @ BEDTIME PO
     Route: 048
     Dates: start: 20050601, end: 20061201
  8. AMBIEN [Suspect]
     Indication: STRESS
     Dosage: 10.0 MG 1 @ BEDTIME PO
     Route: 048
     Dates: start: 20050601, end: 20061201

REACTIONS (8)
  - ABNORMAL SLEEP-RELATED EVENT [None]
  - AMNESIA [None]
  - DIZZINESS [None]
  - DRUG TOLERANCE [None]
  - FEELING ABNORMAL [None]
  - FEELING OF RELAXATION [None]
  - HANGOVER [None]
  - SOMNOLENCE [None]
